FAERS Safety Report 8112357-9 (Version None)
Quarter: 2012Q1

REPORT INFORMATION
  Report Type: 
  Country: None (occurrence: None)
  Receive Date: 20120203
  Receipt Date: 20120201
  Transmission Date: 20120608
  Serious: Yes (Life-Threatening, Hospitalization, Other)
  Sender: FDA-Public Use
  Company Number: DE-B.I. PHARMACEUTICALS,INC./RIDGEFIELD-2012-DE-00343DE

PATIENT
  Sex: Female
  Weight: 101 kg

DRUGS (6)
  1. TORSEMIDE [Concomitant]
     Indication: HYPERTENSION
     Dosage: 10 MG
     Route: 048
     Dates: start: 20120101
  2. PRADAXA [Suspect]
     Indication: ATRIAL FIBRILLATION
     Dosage: 150 MG
     Route: 048
     Dates: start: 20111001, end: 20120101
  3. METOPROLOL RET [Concomitant]
     Indication: HYPERTENSION
     Dosage: 190 MG
     Route: 048
     Dates: start: 20120101
  4. ENALAPRIL MALEATE [Concomitant]
     Indication: HYPERTENSION
     Dosage: 20 MG
     Route: 048
     Dates: start: 20120101
  5. METOPROLOL RET [Concomitant]
     Indication: ATRIAL FIBRILLATION
  6. TRIAMTEREN/HTC [Concomitant]
     Indication: HYPERTENSION
     Dosage: 1 ANZ
     Route: 048
     Dates: start: 20120101

REACTIONS (10)
  - GASTROINTESTINAL HAEMORRHAGE [None]
  - EPISTAXIS [None]
  - BLOOD CREATININE [None]
  - HAEMOGLOBIN [None]
  - INTERNATIONAL NORMALISED RATIO [None]
  - RENAL FAILURE ACUTE [None]
  - ELECTROLYTE IMBALANCE [None]
  - PANCYTOPENIA [None]
  - PROTHROMBIN TIME PROLONGED [None]
  - GLOMERULAR FILTRATION RATE [None]
